FAERS Safety Report 7349341-9 (Version None)
Quarter: 2011Q1

REPORT INFORMATION
  Report Type: 
  Country: None (occurrence: None)
  Receive Date: 20110314
  Receipt Date: 20110311
  Transmission Date: 20110831
  Serious: Yes (Hospitalization, Other)
  Sender: FDA-Public Use
  Company Number: US-ELI_LILLY_AND_COMPANY-US201103003823

PATIENT
  Sex: Female
  Weight: 56.689 kg

DRUGS (4)
  1. PRAVACHOL [Concomitant]
     Indication: HYPERLIPIDAEMIA
     Dosage: 80 MG, DAILY (1/D)
     Route: 048
     Dates: start: 20100812
  2. PRASUGREL HYDROCHLORIDE [Suspect]
     Indication: ACUTE CORONARY SYNDROME
     Dosage: 10 MG, DAILY (1/D)
     Dates: start: 20100811
  3. ATENOLOL [Concomitant]
     Indication: ANGINA PECTORIS
     Dosage: 25 MG, DAILY (1/D)
     Route: 048
     Dates: start: 20100812
  4. ASPIRIN [Concomitant]
     Dosage: 325 MG, DAILY (1/D)
     Dates: start: 20100811

REACTIONS (1)
  - CORONARY ARTERY DISEASE [None]
